FAERS Safety Report 24399891 (Version 2)
Quarter: 2024Q4

REPORT INFORMATION
  Report Type: Spontaneous
  Country: CN (occurrence: CN)
  Receive Date: 20241005
  Receipt Date: 20241009
  Transmission Date: 20250115
  Serious: Yes (Hospitalization, Other)
  Sender: ABBVIE
  Company Number: CN-ABBVIE-5945374

PATIENT
  Sex: Female

DRUGS (3)
  1. VENETOCLAX [Suspect]
     Active Substance: VENETOCLAX
     Indication: Acute myeloid leukaemia
     Route: 048
     Dates: start: 20240724, end: 20240807
  2. CYTARABINE HYDROCHLORIDE [Suspect]
     Active Substance: CYTARABINE HYDROCHLORIDE
     Indication: Acute myeloid leukaemia
     Route: 058
     Dates: start: 20240724, end: 20240730
  3. DECITABINE [Suspect]
     Active Substance: DECITABINE
     Indication: Acute myeloid leukaemia
     Route: 041
     Dates: start: 20240724, end: 20240728

REACTIONS (25)
  - Agranulocytosis [Recovering/Resolving]
  - White blood cell count decreased [Recovering/Resolving]
  - Platelet count decreased [Recovering/Resolving]
  - Lower gastrointestinal haemorrhage [Recovering/Resolving]
  - Pneumonia [Recovering/Resolving]
  - Red blood cell count decreased [Unknown]
  - Myelosuppression [Recovering/Resolving]
  - Nasopharyngitis [Unknown]
  - Pyrexia [Unknown]
  - Vomiting [Unknown]
  - Diarrhoea [Unknown]
  - Faeces discoloured [Unknown]
  - Proctalgia [Unknown]
  - Gingival swelling [Unknown]
  - Gingival pain [Unknown]
  - Gingival bleeding [Unknown]
  - Vaginal haemorrhage [Unknown]
  - Granulocytopenia [Unknown]
  - Occult blood positive [Unknown]
  - Blood pressure decreased [Unknown]
  - Shock haemorrhagic [Unknown]
  - Septic shock [Unknown]
  - Anaemia [Unknown]
  - Haematochezia [Recovering/Resolving]
  - Gastrointestinal sounds abnormal [Recovered/Resolved]

NARRATIVE: CASE EVENT DATE: 20240101
